FAERS Safety Report 15279460 (Version 1)
Quarter: 2018Q4

REPORT INFORMATION
  Report Type: Spontaneous
  Country: EG (occurrence: EG)
  Receive Date: 20180815
  Receipt Date: 20180815
  Transmission Date: 20190204
  Serious: Yes (Death, Hospitalization, Other)
  Sender: FDA-Public Use
  Company Number: EG-ASTRAZENECA-2018SF01303

PATIENT
  Sex: Male

DRUGS (4)
  1. IRESSA [Suspect]
     Active Substance: GEFITINIB
     Dosage: 250
     Route: 048
     Dates: start: 20171031, end: 20180801
  2. SYLIMARIN (SILYBUM MARIANUM EXTRACT) [Suspect]
     Active Substance: DIETARY SUPPLEMENT\HERBALS\MILK THISTLE
     Route: 065
  3. VITAMIN K [Suspect]
     Active Substance: PHYTONADIONE
     Route: 065
  4. URSODEOXYCHOLIC ACID [Suspect]
     Active Substance: URSODIOL
     Route: 065

REACTIONS (1)
  - Ammonia increased [Fatal]

NARRATIVE: CASE EVENT DATE: 20171031
